FAERS Safety Report 15644379 (Version 3)
Quarter: 2019Q3

REPORT INFORMATION
  Report Type: Report from Study
  Country: US (occurrence: US)
  Receive Date: 20181121
  Receipt Date: 20190703
  Transmission Date: 20191004
  Serious: Yes (Hospitalization, Other)
  Sender: FDA-Public Use
  Company Number: US-ACTELION-A-NJ2017-152234

PATIENT
  Age: 69 Year
  Sex: Female

DRUGS (20)
  1. PREDNISONE. [Concomitant]
     Active Substance: PREDNISONE
  2. ALVESCO [Concomitant]
     Active Substance: CICLESONIDE
  3. ZOFRAN [Concomitant]
     Active Substance: ONDANSETRON HYDROCHLORIDE
  4. FLONASE [Concomitant]
     Active Substance: FLUTICASONE PROPIONATE
  5. LEVOTHYROXINE. [Concomitant]
     Active Substance: LEVOTHYROXINE
  6. FLUCONAZOLE. [Concomitant]
     Active Substance: FLUCONAZOLE
  7. ASPIRIN. [Concomitant]
     Active Substance: ASPIRIN
  8. CLOTRIMAZOLE. [Concomitant]
     Active Substance: CLOTRIMAZOLE
  9. BENZONATATE. [Concomitant]
     Active Substance: BENZONATATE
  10. MONTELUKAST [Concomitant]
     Active Substance: MONTELUKAST SODIUM
  11. ATROVENT [Concomitant]
     Active Substance: IPRATROPIUM BROMIDE
  12. METOLAZONE. [Concomitant]
     Active Substance: METOLAZONE
  13. OPSUMIT [Suspect]
     Active Substance: MACITENTAN
     Indication: PULMONARY HYPERTENSION
     Dosage: 10 MG, QD
     Route: 048
     Dates: start: 20170330
  14. DUONEB [Concomitant]
     Active Substance: ALBUTEROL SULFATE\IPRATROPIUM BROMIDE
  15. SONATA [Concomitant]
     Active Substance: ZALEPLON
  16. MVI [Concomitant]
     Active Substance: VITAMINS
  17. SOTALOL. [Concomitant]
     Active Substance: SOTALOL
  18. PANTOPRAZOLE [Concomitant]
     Active Substance: PANTOPRAZOLE
  19. TYLENOL [Concomitant]
     Active Substance: ACETAMINOPHEN
  20. CEFDINIR. [Concomitant]
     Active Substance: CEFDINIR

REACTIONS (9)
  - Bronchitis [Unknown]
  - Fluid retention [Unknown]
  - Pneumonia [Unknown]
  - Condition aggravated [Recovering/Resolving]
  - Dyspnoea [Recovering/Resolving]
  - Pleural effusion [Recovering/Resolving]
  - Peripheral swelling [Unknown]
  - Acute respiratory failure [Unknown]
  - Weight increased [Unknown]

NARRATIVE: CASE EVENT DATE: 20170405
